FAERS Safety Report 9814348 (Version 3)
Quarter: 2014Q1

REPORT INFORMATION
  Report Type: Spontaneous
  Country: JP (occurrence: JP)
  Receive Date: 20140113
  Receipt Date: 20140220
  Transmission Date: 20141002
  Serious: Yes (Other)
  Sender: FDA-Public Use
  Company Number: JP-PFIZER INC-2014005369

PATIENT
  Age: 70 Year
  Sex: Male

DRUGS (4)
  1. SOLU-MEDROL [Suspect]
     Dosage: 100 MG, DAILY
     Route: 041
  2. PREDNISOLONE [Suspect]
     Indication: POLYARTERITIS NODOSA
     Dosage: 60 MG, UNK
  3. PREDNISOLONE [Suspect]
     Dosage: 21 MG, UNK
  4. PREDNISOLONE [Suspect]
     Dosage: 40 MG, DAILY

REACTIONS (3)
  - Delirium [Recovered/Resolved]
  - Anger [Unknown]
  - Aggression [Unknown]
